FAERS Safety Report 21323188 (Version 1)
Quarter: 2022Q3

REPORT INFORMATION
  Report Type: Spontaneous
  Country: US (occurrence: US)
  Receive Date: 20220912
  Receipt Date: 20220912
  Transmission Date: 20221027
  Serious: Yes (Hospitalization)
  Sender: FDA-Public Use
  Company Number: US-BAYER-2022A125024

PATIENT
  Age: 82 Year
  Sex: Male

DRUGS (1)
  1. ASPIRIN [Interacting]
     Active Substance: ASPIRIN
     Dosage: UNK

REACTIONS (3)
  - Pericardial effusion [Unknown]
  - Internal haemorrhage [Unknown]
  - Labelled drug-drug interaction medication error [None]
